FAERS Safety Report 6056191-2 (Version None)
Quarter: 2009Q1

REPORT INFORMATION
  Report Type: 
  Country: None (occurrence: None)
  Receive Date: 20090123
  Receipt Date: 20090123
  Transmission Date: 20090719
  Serious: Yes (Death)
  Sender: FDA-Public Use
  Company Number: None

PATIENT
  Age: 4 Month
  Sex: Female
  Weight: 6.54 kg

DRUGS (2)
  1. ISONIAZID [Suspect]
     Indication: TUBERCULOSIS
     Dosage: 100 MG DAILY PO
     Route: 048
     Dates: start: 20071210, end: 20080104
  2. BACTRIM [Suspect]
     Indication: TUBERCULOSIS
     Dosage: 4.1 ML DAILY PO
     Route: 048
     Dates: start: 20071210, end: 20080104

REACTIONS (1)
  - DEATH [None]
